FAERS Safety Report 5671124-6 (Version None)
Quarter: 2008Q1

REPORT INFORMATION
  Report Type: 
  Country: None (occurrence: None)
  Receive Date: 20080318
  Receipt Date: 20080312
  Transmission Date: 20080703
  Serious: Yes (Death)
  Sender: FDA-Public Use
  Company Number: US-JNJFOC-20080303177

PATIENT
  Age: 84 Year
  Sex: Female
  Weight: 58.06 kg

DRUGS (3)
  1. IMODIUM A-D [Suspect]
     Route: 048
  2. IMODIUM A-D [Suspect]
     Indication: DIARRHOEA
     Route: 048
  3. LEXAPRO [Concomitant]
     Indication: ANXIETY

REACTIONS (2)
  - MEGACOLON [None]
  - SEPTIC SHOCK [None]
